FAERS Safety Report 19211833 (Version 2)
Quarter: 2021Q2

REPORT INFORMATION
  Report Type: Spontaneous
  Country: US (occurrence: US)
  Receive Date: 20210504
  Receipt Date: 20210607
  Transmission Date: 20210717
  Serious: No
  Sender: FDA-Public Use
  Company Number: US-FDC LIMITED-2020RIS00503

PATIENT
  Sex: Female
  Weight: 68.03 kg

DRUGS (3)
  1. TIMOLOL MALEATE. [Suspect]
     Active Substance: TIMOLOL MALEATE
     Indication: GLAUCOMA
     Dosage: UNK
     Dates: start: 202012, end: 202012
  2. LATANOPROST. [Suspect]
     Active Substance: LATANOPROST
     Dosage: UNK
     Dates: start: 2020, end: 202012
  3. MULTIVITAMIN [Concomitant]
     Active Substance: VITAMINS

REACTIONS (2)
  - Drug ineffective [Recovered/Resolved]
  - Tinnitus [Recovering/Resolving]

NARRATIVE: CASE EVENT DATE: 2020
